FAERS Safety Report 7625936-X (Version None)
Quarter: 2011Q3

REPORT INFORMATION
  Report Type: 
  Country: None (occurrence: None)
  Receive Date: 20110721
  Receipt Date: 20110721
  Transmission Date: 20111222
  Serious: Yes (Other)
  Sender: FDA-Public Use
  Company Number: None

PATIENT
  Sex: Female

DRUGS (1)
  1. CEFDINIR [Suspect]
     Dosage: ONE CAPSULE
     Route: 048
     Dates: start: 20110718, end: 20110719

REACTIONS (3)
  - HYPERSENSITIVITY [None]
  - PURULENT DISCHARGE [None]
  - EYE DISCHARGE [None]
